FAERS Safety Report 14927223 (Version 3)
Quarter: 2018Q3

REPORT INFORMATION
  Report Type: Spontaneous
  Country: US (occurrence: US)
  Receive Date: 20180523
  Receipt Date: 20180814
  Transmission Date: 20181010
  Serious: No
  Sender: FDA-Public Use
  Company Number: US-PFIZER INC-2018210236

PATIENT
  Age: 63 Year
  Sex: Female
  Weight: 68.95 kg

DRUGS (5)
  1. VENLAFAXINE HCL [Suspect]
     Active Substance: VENLAFAXINE HYDROCHLORIDE
     Indication: ANXIETY
     Dosage: 225 MG, 1X/DAY(150MG CAPSULE AND 75MG CAPSULE FOR A TOTAL OF 225MG BY MOUTH ONCE A DAY)
     Route: 048
     Dates: start: 2007, end: 20180326
  2. LORAZEPAM. [Concomitant]
     Active Substance: LORAZEPAM
     Dosage: 0.5 MG, AS NEEDED
  3. VENLAFAXINE HCL [Suspect]
     Active Substance: VENLAFAXINE HYDROCHLORIDE
     Indication: DEPRESSION
     Dosage: UNK UNK, 1X/DAY(225)
     Dates: start: 2007
  4. ALENDRONATE SODIUM. [Concomitant]
     Active Substance: ALENDRONATE SODIUM
     Dosage: 70 MG, WEEKLY
  5. CENTRUM SILVER WOMEN 50+ [Concomitant]
     Dosage: UNK

REACTIONS (5)
  - Nausea [Unknown]
  - Withdrawal syndrome [Not Recovered/Not Resolved]
  - Influenza like illness [Unknown]
  - Pain in extremity [Not Recovered/Not Resolved]
  - Insomnia [Not Recovered/Not Resolved]

NARRATIVE: CASE EVENT DATE: 2010
